APPROVED DRUG PRODUCT: CARBAMAZEPINE
Active Ingredient: CARBAMAZEPINE
Strength: 200MG
Dosage Form/Route: TABLET, EXTENDED RELEASE;ORAL
Application: A213311 | Product #002 | TE Code: AB
Applicant: CSPC OUYI PHARMACEUTICAL CO LTD
Approved: Apr 13, 2021 | RLD: No | RS: No | Type: RX